FAERS Safety Report 9187458 (Version 2)
Quarter: 2013Q3

REPORT INFORMATION
  Report Type: Spontaneous
  Country: FR (occurrence: FR)
  Receive Date: 20130325
  Receipt Date: 20130725
  Transmission Date: 20140515
  Serious: Yes (Hospitalization)
  Sender: FDA-Public Use
  Company Number: FR-PFIZER INC-2013092352

PATIENT
  Age: 51 Year
  Sex: Female

DRUGS (4)
  1. CELEBREX [Suspect]
     Indication: EPICONDYLITIS
     Dosage: 200 MG, 1X/DAY AT NOON
     Dates: start: 20130306
  2. INEXIUM [Suspect]
     Indication: GASTROINTESTINAL DISORDER
     Dosage: 20 UNK, 1X/DAY AT NOON
     Dates: start: 20130306
  3. TRINORDIOL [Concomitant]
     Dosage: UNK
  4. ALTIM [Concomitant]
     Indication: EPICONDYLITIS
     Dosage: 2 MG, 1X/DAY
     Route: 050
     Dates: start: 20130306

REACTIONS (4)
  - Epilepsy [Unknown]
  - Palpitations [Unknown]
  - Chest pain [Unknown]
  - Weight decreased [Unknown]
